APPROVED DRUG PRODUCT: TIMOLOL MALEATE
Active Ingredient: TIMOLOL MALEATE
Strength: EQ 0.25% BASE
Dosage Form/Route: SOLUTION, GEL FORMING/DROPS;OPHTHALMIC
Application: N020963 | Product #001 | TE Code: AB
Applicant: SANDOZ INC
Approved: Oct 21, 1998 | RLD: Yes | RS: Yes | Type: RX